FAERS Safety Report 15229738 (Version 1)
Quarter: 2018Q3

REPORT INFORMATION
  Report Type: Spontaneous
  Country: US (occurrence: US)
  Receive Date: 20180802
  Receipt Date: 20180802
  Transmission Date: 20181010
  Serious: Yes (Other)
  Sender: FDA-Public Use
  Company Number: US-ACCORD-061789

PATIENT
  Age: 48 Year
  Sex: Female
  Weight: 98.88 kg

DRUGS (8)
  1. CYTOXAN [Suspect]
     Active Substance: CYCLOPHOSPHAMIDE
     Indication: BREAST CANCER STAGE II
     Dosage: 600 MG/M2 DAY 1 Q 21 DAYS
     Route: 042
     Dates: start: 20130521, end: 20130903
  2. NEULASTA [Concomitant]
     Active Substance: PEGFILGRASTIM
     Dosage: STRENGTH: 6 MG/0.6 ML?INJECT 6 MG Q 21 DAYS
     Route: 058
     Dates: start: 20130510
  3. DECADRON [Concomitant]
     Active Substance: DEXAMETHASONE
     Route: 042
  4. LISINOPRIL. [Concomitant]
     Active Substance: LISINOPRIL
     Dosage: STRENGTH: 20 MG?1 P.O. Q. DAY
     Route: 048
     Dates: start: 20100818
  5. DOCETAXEL SANOFI?AVENTIS [Suspect]
     Active Substance: DOCETAXEL
     Indication: BREAST CANCER STAGE II
  6. PROMETHAZINE [Concomitant]
     Active Substance: PROMETHAZINE\PROMETHAZINE HYDROCHLORIDE
     Indication: NAUSEA
     Dosage: STRENGTH: 25 MG?1 P.O. Q. 6 HOURS (QID) PRN
     Route: 048
     Dates: start: 20130521
  7. ALOXI [Concomitant]
     Active Substance: PALONOSETRON HYDROCHLORIDE
     Route: 042
  8. DOCETAXEL ACCORD [Suspect]
     Active Substance: DOCETAXEL
     Indication: BREAST CANCER STAGE II
     Dosage: STRENGTH: 80 MG/KG?60 MG/M2 DAY 1 Q 21 DAYS
     Route: 042
     Dates: start: 20130521, end: 20130903

REACTIONS (9)
  - Hair colour changes [Not Recovered/Not Resolved]
  - Pain [Unknown]
  - Anaemia [Unknown]
  - Hair texture abnormal [Not Recovered/Not Resolved]
  - Nausea [Unknown]
  - Alopecia [Not Recovered/Not Resolved]
  - Vomiting [Unknown]
  - Fatigue [Unknown]
  - Dysgeusia [Unknown]

NARRATIVE: CASE EVENT DATE: 20130528
